FAERS Safety Report 4923663-0 (Version None)
Quarter: 2006Q1

REPORT INFORMATION
  Report Type: 
  Country: None (occurrence: None)
  Receive Date: 20060227
  Receipt Date: 20050520
  Transmission Date: 20060701
  Serious: Yes (Hospitalization, Disabling)
  Sender: FDA-Public Use
  Company Number: US-MERCK-0505USA02753

PATIENT
  Age: 52 Year
  Sex: Female
  Weight: 59 kg

DRUGS (2)
  1. VIOXX [Suspect]
     Indication: ARTHRALGIA
     Route: 048
     Dates: start: 19991124, end: 20040201
  2. VIOXX [Suspect]
     Indication: OSTEOARTHRITIS
     Route: 048
     Dates: start: 19991124, end: 20040201

REACTIONS (22)
  - ANAEMIA [None]
  - ANXIETY [None]
  - ATRIAL SEPTAL DEFECT [None]
  - CAFFEINE CONSUMPTION [None]
  - CAUDA EQUINA SYNDROME [None]
  - CEREBROVASCULAR ACCIDENT [None]
  - CHEST DISCOMFORT [None]
  - DEPRESSION [None]
  - DIZZINESS POSTURAL [None]
  - HEARING IMPAIRED [None]
  - HYPOTHYROIDISM [None]
  - INSOMNIA [None]
  - LOSS OF LIBIDO [None]
  - MUSCLE SPASMS [None]
  - MUSCULOSKELETAL DISCOMFORT [None]
  - PERSONALITY DISORDER [None]
  - STRESS [None]
  - STRESS INCONTINENCE [None]
  - URTICARIA [None]
  - UTERINE DISORDER [None]
  - UTERINE LEIOMYOMA [None]
  - VISION BLURRED [None]
